FAERS Safety Report 21299060 (Version 1)
Quarter: 2022Q3

REPORT INFORMATION
  Report Type: Spontaneous
  Country: US (occurrence: US)
  Receive Date: 20220906
  Receipt Date: 20220906
  Transmission Date: 20221027
  Serious: No
  Sender: FDA-Public Use
  Company Number: US-PFIZER INC-202201118264

PATIENT
  Age: 51 Year
  Sex: Female

DRUGS (1)
  1. IBRANCE [Suspect]
     Active Substance: PALBOCICLIB
     Dosage: 125 MG, CYCLIC (TAKE 1 CAPSULE DAILY ON DAYS 1 THROUGH 21 THEN 7 DAYS OFF)
     Dates: start: 20220725

REACTIONS (4)
  - Hot flush [Unknown]
  - Insomnia [Unknown]
  - Urinary tract infection [Unknown]
  - Headache [Unknown]
